FAERS Safety Report 12783290 (Version 3)
Quarter: 2016Q4

REPORT INFORMATION
  Report Type: Spontaneous
  Country: US (occurrence: US)
  Receive Date: 20160927
  Receipt Date: 20161219
  Transmission Date: 20170207
  Serious: Yes (Hospitalization, Other)
  Sender: FDA-Public Use
  Company Number: US-VANDA PHARMACEUTICALS, INC-2016TASUS001357

PATIENT
  Age: 53 Year
  Sex: Female

DRUGS (1)
  1. HETLIOZ [Suspect]
     Active Substance: TASIMELTEON
     Indication: NON-24-HOUR SLEEP-WAKE DISORDER
     Dosage: 20 MG, EVERY 24 HOURS
     Route: 048
     Dates: start: 20160715

REACTIONS (5)
  - Hip arthroplasty [Unknown]
  - Drug dose omission [Unknown]
  - Disorientation [Unknown]
  - Joint dislocation [Unknown]
  - Insomnia [Unknown]

NARRATIVE: CASE EVENT DATE: 2016
